FAERS Safety Report 19124858 (Version 1)
Quarter: 2021Q2

REPORT INFORMATION
  Report Type: Spontaneous
  Country: HR (occurrence: HR)
  Receive Date: 20210413
  Receipt Date: 20210413
  Transmission Date: 20210717
  Serious: Yes (Other)
  Sender: FDA-Public Use
  Company Number: HR-SUN PHARMACEUTICAL INDUSTRIES LTD-2021R1-290112

PATIENT
  Age: 67 Year
  Sex: Female

DRUGS (2)
  1. METHIMAZOLE. [Suspect]
     Active Substance: METHIMAZOLE
     Dosage: UNK (GRADUAL DECREASE IN 10?DAY INTERVALS)
     Route: 065
  2. METHIMAZOLE. [Suspect]
     Active Substance: METHIMAZOLE
     Indication: TOXIC NODULAR GOITRE
     Dosage: 60 MG, DAILY
     Route: 065

REACTIONS (1)
  - Haemorrhage [Recovering/Resolving]
